FAERS Safety Report 4294447-4 (Version None)
Quarter: 2004Q1

REPORT INFORMATION
  Report Type: 
  Country: None (occurrence: None)
  Receive Date: 20040211
  Receipt Date: 20040202
  Transmission Date: 20041129
  Serious: Yes (Hospitalization)
  Sender: FDA-Public Use
  Company Number: 2004AP00576

PATIENT
  Age: 57 Year
  Sex: Male

DRUGS (1)
  1. GEFITINIB [Suspect]
     Indication: NON-SMALL CELL LUNG CANCER
     Dosage: 250 MG DAILY PO
     Route: 048
     Dates: start: 20020601

REACTIONS (8)
  - BACTERIAL SEPSIS [None]
  - CARCINOEMBRYONIC ANTIGEN INCREASED [None]
  - CONVULSION [None]
  - GAIT DISTURBANCE [None]
  - HEMIPARESIS [None]
  - METASTASES TO CENTRAL NERVOUS SYSTEM [None]
  - NEUROLOGICAL SYMPTOM [None]
  - PHLEBOTHROMBOSIS [None]
